FAERS Safety Report 7138057-X (Version None)
Quarter: 2010Q4

REPORT INFORMATION
  Report Type: 
  Country: None (occurrence: None)
  Receive Date: 20101206
  Receipt Date: 20101126
  Transmission Date: 20110411
  Serious: Yes (Hospitalization)
  Sender: FDA-Public Use
  Company Number: DE-PFIZER INC-DE-WYE-H18243810

PATIENT
  Age: 85 Year
  Sex: Female
  Weight: 63.5 kg

DRUGS (13)
  1. PANTOZOL [Suspect]
     Indication: PROPHYLAXIS AGAINST GASTROINTESTINAL ULCER
     Dosage: 40 MG, 1X/DAY
     Route: 048
     Dates: start: 20100706
  2. CIPRO [Suspect]
     Indication: POST PROCEDURAL INFECTION
     Dosage: 500 MG, 2X/DAY
     Route: 048
     Dates: start: 20100709, end: 20100726
  3. FERRO SANOL [Concomitant]
     Indication: IRON DEFICIENCY ANAEMIA
     Dosage: 80 MG, 2X/DAY
     Route: 048
     Dates: start: 20100620, end: 20100810
  4. EMBOLEX [Concomitant]
     Dosage: 3000 IU, 1X/DAY
     Route: 058
     Dates: start: 20100706, end: 20100726
  5. IMBUN [Concomitant]
     Indication: PROCEDURAL PAIN
     Dosage: 800 MG, 2X/DAY
     Route: 048
     Dates: start: 20100706, end: 20100810
  6. LACTULOSE [Concomitant]
     Indication: CONSTIPATION
     Dosage: 5 G, 1X/DAY
     Route: 048
     Dates: start: 20100706, end: 20100723
  7. LEKOVIT CA [Concomitant]
     Indication: CALCIUM DEFICIENCY
     Dosage: 500 MG, 2X/DAY
     Route: 048
     Dates: start: 20100620, end: 20100626
  8. BERLOSIN [Concomitant]
     Indication: PROCEDURAL PAIN
     Dosage: 500 MG, 4X/DAY
     Route: 048
     Dates: start: 20100618, end: 20100810
  9. METOHEXAL [Concomitant]
     Indication: HYPERTENSION
     Dosage: 25 MG, 2X/DAY
     Route: 048
     Dates: end: 20100810
  10. KALINOR RETARD [Concomitant]
     Indication: HYPOKALAEMIA
     Dosage: 600 MG, 1X/DAY
     Route: 048
     Dates: start: 20100706, end: 20100726
  11. SIMVASTATIN [Concomitant]
     Indication: DYSLIPIDAEMIA
     Dosage: 20 MG, 1X/DAY
     Route: 048
     Dates: start: 20000101, end: 20100810
  12. XIPAMIDE [Concomitant]
     Indication: HYPERTENSION
     Dosage: 5 MG, 1X/DAY
     Route: 048
     Dates: end: 20100810
  13. ACETAMINOPHEN [Concomitant]
     Indication: PROCEDURAL PAIN
     Dosage: 500 MG, 1X/DAY
     Route: 048
     Dates: start: 20100706, end: 20100726

REACTIONS (4)
  - CLOSTRIDIUM DIFFICILE COLITIS [None]
  - DEHYDRATION [None]
  - DIET REFUSAL [None]
  - DRUG INTERACTION [None]
